FAERS Safety Report 17098122 (Version 2)
Quarter: 2019Q4

REPORT INFORMATION
  Report Type: Spontaneous
  Country: CN (occurrence: CN)
  Receive Date: 20191202
  Receipt Date: 20191206
  Transmission Date: 20200122
  Serious: Yes (Other)
  Sender: FDA-Public Use
  Company Number: CN-PFIZER INC-2019516320

PATIENT
  Age: 55 Year
  Sex: Male
  Weight: 68 kg

DRUGS (2)
  1. TAZOCIN [Suspect]
     Active Substance: PIPERACILLIN SODIUM\TAZOBACTAM SODIUM
     Indication: ANTI-INFECTIVE THERAPY
     Dosage: 4.5 G, 3X/DAY
     Route: 041
     Dates: start: 20191010, end: 20191011
  2. SODIUM CHLORIDE. [Concomitant]
     Active Substance: SODIUM CHLORIDE
     Indication: VEHICLE SOLUTION USE
     Dosage: 100 ML, 3X/DAY
     Route: 041
     Dates: start: 20191010, end: 20191011

REACTIONS (1)
  - Blood pressure increased [Recovering/Resolving]

NARRATIVE: CASE EVENT DATE: 20191010
